FAERS Safety Report 7455382-3 (Version None)
Quarter: 2011Q2

REPORT INFORMATION
  Report Type: 
  Country: None (occurrence: None)
  Receive Date: 20110503
  Receipt Date: 20110426
  Transmission Date: 20111010
  Serious: Yes (Death, Life-Threatening, Other)
  Sender: FDA-Public Use
  Company Number: SE-SANOFI-AVENTIS-2011SA025542

PATIENT
  Age: 62 Year
  Sex: Female

DRUGS (8)
  1. MULTAQ [Suspect]
     Indication: ATRIAL FIBRILLATION
     Route: 048
     Dates: start: 20101208, end: 20110128
  2. GLIBENKLAMID ^KABI-VITRUM^ [Concomitant]
  3. WARAN [Suspect]
     Indication: ATRIAL FIBRILLATION
     Route: 048
     Dates: end: 20110128
  4. VERPAMIL [Suspect]
     Indication: ATRIAL FIBRILLATION
     Route: 048
     Dates: start: 20101208, end: 20110128
  5. SIMVASTATIN [Concomitant]
  6. LOSARTAN [Concomitant]
  7. ETANERCEPT [Concomitant]
  8. ACETAMINOPHEN [Concomitant]

REACTIONS (2)
  - CEREBRAL HAEMORRHAGE [None]
  - DRUG INTERACTION [None]
